FAERS Safety Report 16234101 (Version 1)
Quarter: 2019Q2

REPORT INFORMATION
  Report Type: Spontaneous
  Country: PL (occurrence: PL)
  Receive Date: 20190424
  Receipt Date: 20190424
  Transmission Date: 20190711
  Serious: Yes (Hospitalization)
  Sender: FDA-Public Use
  Company Number: PL-BAUSCH-BL-2019-011938

PATIENT
  Age: 66 Year
  Sex: Female

DRUGS (21)
  1. MILURIT [Concomitant]
     Active Substance: ALLOPURINOL
     Indication: CHRONIC KIDNEY DISEASE
     Route: 048
     Dates: start: 201811
  2. DIABREZIDE [Concomitant]
     Active Substance: GLICLAZIDE
     Indication: DIABETES MELLITUS
     Route: 048
     Dates: start: 201112
  3. CARDURA [Concomitant]
     Active Substance: DOXAZOSIN MESYLATE
     Indication: HYPERTENSION
     Route: 048
     Dates: start: 2010
  4. DOXAZOSIN [Concomitant]
     Active Substance: DOXAZOSIN\DOXAZOSIN MESYLATE
     Indication: HYPERTENSION
     Route: 048
     Dates: start: 2010
  5. WARFIN [Concomitant]
     Active Substance: WARFARIN
     Route: 048
     Dates: start: 20190328
  6. NEOPARIN [Concomitant]
     Indication: THROMBOSIS PROPHYLAXIS
     Route: 058
     Dates: start: 20190318, end: 20190325
  7. LENALIDOMIDE [Suspect]
     Active Substance: LENALIDOMIDE
     Indication: PLASMA CELL MYELOMA
     Route: 048
     Dates: start: 20190222
  8. WARFIN [Concomitant]
     Active Substance: WARFARIN
     Indication: THROMBOSIS PROPHYLAXIS
     Route: 048
     Dates: start: 20190318, end: 20190324
  9. MEGALIA [Concomitant]
     Active Substance: MEGESTROL ACETATE
     Indication: DECREASED APPETITE
     Route: 048
     Dates: start: 20190325
  10. DORETA [Concomitant]
     Active Substance: ACETAMINOPHEN\TRAMADOL HYDROCHLORIDE
     Indication: INTERVERTEBRAL DISC DISORDER
     Route: 048
     Dates: start: 201811
  11. DEXAMETHASONE. [Suspect]
     Active Substance: DEXAMETHASONE
     Indication: PLASMA CELL MYELOMA
     Dosage: DOSAGE FORM: UNSPECIFIED
     Route: 048
     Dates: start: 20190222
  12. VELCADE [Suspect]
     Active Substance: BORTEZOMIB
     Indication: PLASMA CELL MYELOMA
     Dosage: DOSAGE FORM: LYOPHILIZED POWDER
     Route: 058
     Dates: start: 20190222
  13. PROPRANOLOL [Concomitant]
     Active Substance: PROPRANOLOL HYDROCHLORIDE
     Indication: ESSENTIAL TREMOR
     Route: 048
     Dates: start: 2016
  14. MESOPRAL [Concomitant]
     Indication: GASTRITIS EROSIVE
     Route: 048
     Dates: start: 201901
  15. TEZEO [Concomitant]
     Active Substance: TELMISARTAN
     Indication: HYPERTENSION
     Route: 048
     Dates: start: 201809
  16. NEOPARIN [Concomitant]
     Indication: THROMBOSIS PROPHYLAXIS
     Route: 058
     Dates: start: 20190322, end: 20190324
  17. WARFIN [Concomitant]
     Active Substance: WARFARIN
     Route: 048
     Dates: start: 20190325
  18. LOPERAMIDE [Concomitant]
     Active Substance: LOPERAMIDE
     Indication: DIARRHOEA
     Route: 048
     Dates: start: 20190326, end: 20190326
  19. ROSWERA [Concomitant]
     Active Substance: ROSUVASTATIN
     Indication: HYPERCHOLESTEROLAEMIA
     Route: 048
     Dates: start: 201809
  20. ACARD [Concomitant]
     Active Substance: ASPIRIN
     Indication: MYOCARDIAL ISCHAEMIA
     Route: 048
     Dates: start: 201809
  21. AMLOPINE [Concomitant]
     Active Substance: AMLODIPINE BESYLATE
     Indication: HYPERTENSION
     Route: 048
     Dates: start: 2010

REACTIONS (1)
  - Pneumonia [Not Recovered/Not Resolved]

NARRATIVE: CASE EVENT DATE: 20190402
